FAERS Safety Report 10782401 (Version 4)
Quarter: 2016Q4

REPORT INFORMATION
  Report Type: Spontaneous
  Country: US (occurrence: US)
  Receive Date: 20150210
  Receipt Date: 20161229
  Transmission Date: 20170206
  Serious: Yes (Hospitalization, Other)
  Sender: FDA-Public Use
  Company Number: US-BAYER-2015-016878

PATIENT
  Age: 59 Year
  Sex: Female
  Weight: 72.11 kg

DRUGS (24)
  1. CLOZAPINE. [Concomitant]
     Active Substance: CLOZAPINE
     Dosage: UNK
  2. GLIBENCLAMIDE [Concomitant]
     Active Substance: GLYBURIDE
     Dosage: UNK
  3. ROPINIROLE. [Concomitant]
     Active Substance: ROPINIROLE
     Dosage: UNK
  4. RELAFEN [Concomitant]
     Active Substance: NABUMETONE
     Indication: RESPIRATORY DISORDER
  5. PREDNISONE. [Concomitant]
     Active Substance: PREDNISONE
     Indication: NASAL CONGESTION
  6. OMEPRAZOLE. [Concomitant]
     Active Substance: OMEPRAZOLE
     Dosage: UNK
  7. CIPROFLOXACIN. [Suspect]
     Active Substance: CIPROFLOXACIN
     Indication: PERIORBITAL CELLULITIS
     Dosage: UNK
     Dates: start: 20050930
  8. CIPROFLOXACIN. [Suspect]
     Active Substance: CIPROFLOXACIN
     Indication: PERIORBITAL CELLULITIS
     Dosage: 5 ML, UNK
     Dates: start: 20140616
  9. NSAID^S [Concomitant]
     Active Substance: UNSPECIFIED INGREDIENT
     Dosage: UNK
  10. LISINOPRIL. [Concomitant]
     Active Substance: LISINOPRIL
     Indication: VASCULITIS
     Dosage: UNK
     Dates: start: 201302
  11. FLUOROQUINOLONES [Concomitant]
     Active Substance: UNSPECIFIED INGREDIENT
     Dosage: UNK
  12. METOCLOPRAMIDE. [Concomitant]
     Active Substance: METOCLOPRAMIDE
     Dosage: UNK
  13. CYCLOSPORINE. [Concomitant]
     Active Substance: CYCLOSPORINE
     Dosage: UNK
  14. WARFARIN [Concomitant]
     Active Substance: WARFARIN
     Dosage: UNK
  15. CIPROFLOXACIN. [Suspect]
     Active Substance: CIPROFLOXACIN
     Indication: PERIORBITAL CELLULITIS
     Dosage: UNK
     Dates: start: 20120709
  16. DULOXETINE. [Concomitant]
     Active Substance: DULOXETINE
     Dosage: UNK
  17. METHOTREXATE. [Concomitant]
     Active Substance: METHOTREXATE
     Dosage: UNK
  18. ALEVE PM [Concomitant]
     Active Substance: DIPHENHYDRAMINE HYDROCHLORIDE\NAPROXEN SODIUM
  19. AVELOX [Suspect]
     Active Substance: MOXIFLOXACIN HYDROCHLORIDE
     Indication: OROPHARYNGEAL PAIN
  20. PREDNISONE. [Concomitant]
     Active Substance: PREDNISONE
     Indication: VASCULITIS
     Dosage: UNK
     Dates: start: 201302
  21. CORTICOSTEROIDS [Concomitant]
     Active Substance: CORTICOSTEROID NOS
     Dosage: UNK
  22. TIZANIDINE. [Concomitant]
     Active Substance: TIZANIDINE
     Dosage: UNK
  23. AVELOX [Suspect]
     Active Substance: MOXIFLOXACIN HYDROCHLORIDE
     Indication: RESPIRATORY TRACT CONGESTION
     Dosage: 400 MG, UNK
     Dates: start: 20130115
  24. THEOPHYLLINE [Concomitant]
     Active Substance: THEOPHYLLINE ANHYDROUS
     Dosage: UNK

REACTIONS (27)
  - Injury [None]
  - Mood swings [None]
  - Neuropathy peripheral [None]
  - Anhedonia [None]
  - Nervous system disorder [None]
  - Emotional distress [None]
  - Asthenia [None]
  - Disturbance in attention [None]
  - Sinus congestion [None]
  - Hypoaesthesia [None]
  - Anxiety [None]
  - Fear [None]
  - Drug hypersensitivity [None]
  - Myositis [Recovering/Resolving]
  - Antineutrophil cytoplasmic antibody positive [None]
  - Asthenia [Recovering/Resolving]
  - Fall [Recovering/Resolving]
  - Myositis [None]
  - Fatigue [None]
  - Radius fracture [None]
  - Ocular hyperaemia [None]
  - Eye pain [None]
  - Myalgia [Not Recovered/Not Resolved]
  - Arthralgia [None]
  - Rhabdomyolysis [None]
  - Chronic kidney disease [Not Recovered/Not Resolved]
  - Pain [None]

NARRATIVE: CASE EVENT DATE: 20130223
